FAERS Safety Report 8919093 (Version 3)
Quarter: 2012Q4

REPORT INFORMATION
  Report Type: 
  Country: BE (occurrence: BE)
  Receive Date: 20121121
  Receipt Date: 20121214
  Transmission Date: 20130627
  Serious: Yes (Other)
  Sender: FDA-Public Use
  Company Number: BE-JNJFOC-20121106406

PATIENT
  Age: 45 Year
  Sex: Male
  Weight: 125 kg

DRUGS (3)
  1. STELARA [Suspect]
     Indication: PRODUCT USED FOR UNKNOWN INDICATION
     Dosage: 2nd dose at 4th week
     Route: 058
  2. STELARA [Suspect]
     Indication: PRODUCT USED FOR UNKNOWN INDICATION
     Dosage: 1st dose at zero week
     Route: 058
  3. STELARA [Suspect]
     Indication: PRODUCT USED FOR UNKNOWN INDICATION
     Dosage: 3 rd dose given at 8th week instead of 12 weeks
     Route: 058

REACTIONS (3)
  - Blood triglycerides increased [Unknown]
  - Blood cholesterol increased [Unknown]
  - Inappropriate schedule of drug administration [Unknown]
